FAERS Safety Report 12433442 (Version 2)
Quarter: 2016Q2

REPORT INFORMATION
  Report Type: Spontaneous
  Country: RO (occurrence: RO)
  Receive Date: 20160603
  Receipt Date: 20160609
  Transmission Date: 20160815
  Serious: Yes (Hospitalization, Other)
  Sender: FDA-Public Use
  Company Number: PHHY2016RO075357

PATIENT
  Age: 60 Year
  Sex: Female
  Weight: 93 kg

DRUGS (4)
  1. TENAXUM [Concomitant]
     Active Substance: RILMENIDINE
     Indication: HYPERTENSION
     Route: 065
  2. METFORMIN [Concomitant]
     Active Substance: METFORMIN HYDROCHLORIDE
     Indication: BLOOD GLUCOSE INCREASED
     Route: 065
  3. EXFORGE [Concomitant]
     Active Substance: AMLODIPINE BESYLATE\VALSARTAN
     Indication: HYPERTENSION
     Route: 065
  4. SIGNIFOR [Suspect]
     Active Substance: PASIREOTIDE
     Indication: PITUITARY-DEPENDENT CUSHING^S SYNDROME
     Dosage: 0.6 MG, BID
     Route: 058
     Dates: start: 20160409, end: 20160512

REACTIONS (6)
  - Adrenal insufficiency [Recovering/Resolving]
  - Fatigue [Unknown]
  - Electrocardiogram QT prolonged [Recovered/Resolved]
  - Asthenia [Unknown]
  - Myalgia [Unknown]
  - Hypotension [Unknown]

NARRATIVE: CASE EVENT DATE: 20160506
